FAERS Safety Report 16805314 (Version 3)
Quarter: 2019Q4

REPORT INFORMATION
  Report Type: Report from Study
  Country: SG (occurrence: KR)
  Receive Date: 20190913
  Receipt Date: 20191120
  Transmission Date: 20200122
  Serious: Yes (Hospitalization, Other)
  Sender: FDA-Public Use
  Company Number: KR-ASTELLAS-2019US036327

PATIENT
  Age: 61 Year
  Sex: Female

DRUGS (8)
  1. ALLEGRA [Concomitant]
     Active Substance: FEXOFENADINE HYDROCHLORIDE
     Indication: URTICARIA CHRONIC
     Route: 048
     Dates: start: 20190508, end: 20190820
  2. ALLEGRA [Concomitant]
     Active Substance: FEXOFENADINE HYDROCHLORIDE
     Route: 048
     Dates: start: 20190828, end: 20190924
  3. DERMOVATE [Concomitant]
     Active Substance: CLOBETASOL
     Indication: PRURIGO
     Dosage: UNK UNK, ONCE DAILY
     Route: 062
     Dates: start: 20190724
  4. DERMOVATE [Concomitant]
     Active Substance: CLOBETASOL
     Indication: PRURIGO
     Dosage: UNK UNK, ONCE DAILY
     Route: 048
     Dates: start: 20190828
  5. RUPAFIN [Concomitant]
     Active Substance: RUPATADINE FUMARATE
     Indication: PRURIGO
     Route: 048
     Dates: start: 20190508, end: 20190820
  6. MIRABEGRON [Suspect]
     Active Substance: MIRABEGRON
     Indication: HYPERTONIC BLADDER
     Route: 048
     Dates: start: 20190509, end: 20190509
  7. LETIRIZINE [Concomitant]
     Active Substance: LEVOCETIRIZINE
     Indication: PRURIGO
     Route: 048
     Dates: start: 20190724, end: 20190820
  8. ALBIS [Concomitant]
     Active Substance: BISMUTH SUBCITRATE\RANITIDINE HYDROCHLORIDE\SUCRALFATE
     Indication: GASTRITIS PROPHYLAXIS
     Route: 048
     Dates: start: 20190828

REACTIONS (1)
  - Cholecystitis [Recovered/Resolved]

NARRATIVE: CASE EVENT DATE: 20190903
